FAERS Safety Report 18142135 (Version 1)
Quarter: 2020Q3

REPORT INFORMATION
  Report Type: Other
  Country: NL (occurrence: NL)
  Receive Date: 20200812
  Receipt Date: 20200812
  Transmission Date: 20201103
  Serious: Yes (Other)
  Sender: FDA-Public Use
  Company Number: NL-TOPROL ACQUISITION LLC-2020-TOP-000316

PATIENT
  Sex: Male
  Weight: 93 kg

DRUGS (1)
  1. METOPROLOL SUCCINATE. [Suspect]
     Active Substance: METOPROLOL SUCCINATE
     Indication: HYPERTENSION
     Dosage: 1 DF, UNK
     Route: 048
     Dates: start: 20200714

REACTIONS (2)
  - Poor peripheral circulation [Unknown]
  - Polyneuropathy [Not Recovered/Not Resolved]
